FAERS Safety Report 10515578 (Version 1)
Quarter: 2014Q4

REPORT INFORMATION
  Report Type: Spontaneous
  Country: US (occurrence: None)
  Receive Date: 20141009
  Receipt Date: 20141009
  Transmission Date: 20150528
  Serious: Yes (Hospitalization)
  Sender: FDA-Public Use
  Company Number: 2014-US-012940

PATIENT
  Age: 29 Year
  Sex: Male

DRUGS (1)
  1. CLOZAPINE USP, ODT (CLOZAPINE, USP) TABLET, MG [Suspect]
     Active Substance: CLOZAPINE
     Dosage: MG
     Route: 048

REACTIONS (1)
  - Investigation [None]
